FAERS Safety Report 5820450-6 (Version None)
Quarter: 2008Q3

REPORT INFORMATION
  Report Type: 
  Country: None (occurrence: None)
  Receive Date: 20080724
  Receipt Date: 20071022
  Transmission Date: 20090109
  Serious: No
  Sender: FDA-Public Use
  Company Number: A0667356A

PATIENT
  Age: 44 Year
  Sex: Male
  Weight: 104.5 kg

DRUGS (7)
  1. AVANDIA [Suspect]
     Dosage: 8MG PER DAY
     Route: 048
     Dates: start: 20000101, end: 20070501
  2. METFORMIN [Concomitant]
  3. PRANDIN [Concomitant]
  4. PREVACID [Concomitant]
  5. ZOCOR [Concomitant]
  6. PERCOCET [Concomitant]
  7. OXYCONTIN [Concomitant]

REACTIONS (2)
  - BLOOD GLUCOSE INCREASED [None]
  - WEIGHT INCREASED [None]
